FAERS Safety Report 17282964 (Version 2)
Quarter: 2020Q1

REPORT INFORMATION
  Report Type: Spontaneous
  Country: US (occurrence: US)
  Receive Date: 20200117
  Receipt Date: 20200225
  Transmission Date: 20200409
  Serious: Yes (Other)
  Sender: FDA-Public Use
  Company Number: US-JNJFOC-20200117381

PATIENT
  Age: 73 Year
  Sex: Male
  Weight: 88.53 kg

DRUGS (7)
  1. XARELTO [Suspect]
     Active Substance: RIVAROXABAN
     Indication: CEREBROVASCULAR ACCIDENT PROPHYLAXIS
  2. IRON [Concomitant]
     Active Substance: IRON
  3. FLECAINIDE [Concomitant]
     Active Substance: FLECAINIDE
  4. METOPROLOL. [Concomitant]
     Active Substance: METOPROLOL
     Dosage: 1/2 PILL
  5. LEVOTHYROXINE. [Concomitant]
     Active Substance: LEVOTHYROXINE
  6. AMITRIPTYLINE [Concomitant]
     Active Substance: AMITRIPTYLINE
  7. XARELTO [Suspect]
     Active Substance: RIVAROXABAN
     Indication: ATRIAL FIBRILLATION
     Dosage: 100012213338
     Route: 048
     Dates: start: 201905, end: 20191230

REACTIONS (1)
  - Heart rate irregular [Recovering/Resolving]

NARRATIVE: CASE EVENT DATE: 20191130
